FAERS Safety Report 6391361-5 (Version None)
Quarter: 2009Q4

REPORT INFORMATION
  Report Type: 
  Country: None (occurrence: None)
  Receive Date: 20091007
  Receipt Date: 20090925
  Transmission Date: 20100525
  Serious: Yes (Other)
  Sender: FDA-Public Use
  Company Number: US-JNJFOC-20091000153

PATIENT

DRUGS (1)
  1. TYLENOL (CAPLET) [Suspect]
     Indication: PAIN

REACTIONS (3)
  - PAIN [None]
  - TRANSMISSION OF AN INFECTIOUS AGENT VIA A MEDICINAL PRODUCT [None]
  - VIRAL INFECTION [None]
